FAERS Safety Report 4575971-3 (Version None)
Quarter: 2005Q1

REPORT INFORMATION
  Report Type: 
  Country: None (occurrence: None)
  Receive Date: 20050209
  Receipt Date: 20050202
  Transmission Date: 20050727
  Serious: Yes (Other)
  Sender: FDA-Public Use
  Company Number: US-BRISTOL-MYERS SQUIBB COMPANY-12846242

PATIENT
  Age: 69 Year
  Sex: Male
  Weight: 92 kg

DRUGS (4)
  1. CETUXIMAB [Suspect]
     Indication: PANCREATIC CARCINOMA
     Dosage: INITIAL TX ON:02-FEB-04/DOSAGE PROVIDED WAS TOTAL DOSE ADM THIS COURSE/DOSE ON 31-JAN-05 BEING HELD
     Route: 042
     Dates: start: 20050124
  2. DOCETAXEL [Suspect]
     Indication: PANCREATIC CARCINOMA
     Dosage: INITIAL TX ON:02-FEB-04/DRUG DELAYED 1 DAY ON WEEKS #1 + 2/DELAY ON WEEK #4/DOSE:TOTAL AMT ADM
     Route: 042
     Dates: start: 20050120
  3. IRINOTECAN HCL [Suspect]
     Indication: PANCREATIC CARCINOMA
     Dosage: INITIAL TX ON:02-FEB-04/DRUG DELAYED 1 DAY ON WEEKS #1 + 2/DELAYED ON WEEK #4/DOSE:TOTAL AMT ADM
     Route: 042
     Dates: start: 20050120
  4. ENOXAPARIN SODIUM [Suspect]
     Indication: PROPHYLAXIS
     Route: 058
     Dates: start: 20050130

REACTIONS (1)
  - HYPOMAGNESAEMIA [None]
